FAERS Safety Report 14944969 (Version 2)
Quarter: 2018Q3

REPORT INFORMATION
  Report Type: Spontaneous
  Country: ES (occurrence: ES)
  Receive Date: 20180529
  Receipt Date: 20180709
  Transmission Date: 20181010
  Serious: Yes (Hospitalization, Other)
  Sender: FDA-Public Use
  Company Number: ES-TEVA-2018-ES-897776

PATIENT
  Age: 56 Year
  Sex: Male

DRUGS (1)
  1. SILDENAFIL. [Suspect]
     Active Substance: SILDENAFIL
     Dosage: 100 MILLIGRAM DAILY;
     Route: 065

REACTIONS (4)
  - Spinal cord disorder [Recovered/Resolved]
  - Spinal cord infarction [Recovered/Resolved]
  - Spinal cord ischaemia [Recovered/Resolved]
  - Prescription drug used without a prescription [Unknown]
